FAERS Safety Report 19289567 (Version 1)
Quarter: 2021Q2

REPORT INFORMATION
  Report Type: Spontaneous
  Country: US (occurrence: US)
  Receive Date: 20210521
  Receipt Date: 20210521
  Transmission Date: 20210717
  Serious: No
  Sender: FDA-Public Use
  Company Number: US-PFIZER INC-2021229587

PATIENT
  Age: 70 Year
  Sex: Male

DRUGS (2)
  1. RETACRIT [Suspect]
     Active Substance: EPOETIN ALFA-EPBX
     Dosage: 10000 IU, 2X/WEEK
  2. RETACRIT [Suspect]
     Active Substance: EPOETIN ALFA-EPBX
     Dosage: 10000 IU, WEEKLY

REACTIONS (2)
  - General physical health deterioration [Unknown]
  - Off label use [Unknown]
